FAERS Safety Report 14505902 (Version 3)
Quarter: 2021Q2

REPORT INFORMATION
  Report Type: Spontaneous
  Country: US (occurrence: US)
  Receive Date: 20180208
  Receipt Date: 20210603
  Transmission Date: 20210716
  Serious: Yes (Life-Threatening, Hospitalization)
  Sender: FDA-Public Use
  Company Number: US-TEVA-2018-US-855744

PATIENT
  Age: 49 Year
  Sex: Male

DRUGS (14)
  1. ONDANSETRON [Interacting]
     Active Substance: ONDANSETRON
     Indication: VOMITING
  2. DOFETILIDE. [Interacting]
     Active Substance: DOFETILIDE
     Indication: OVERDOSE
     Dosage: 2000 MICROGRAM DAILY;
     Route: 065
  3. FOLIC ACID. [Concomitant]
     Active Substance: FOLIC ACID
     Indication: PRODUCT USED FOR UNKNOWN INDICATION
     Route: 065
  4. FUROSEMID [Interacting]
     Active Substance: FUROSEMIDE
     Indication: HYPERTENSION
     Route: 065
  5. IBUPROFEN. [Concomitant]
     Active Substance: IBUPROFEN
     Indication: PRODUCT USED FOR UNKNOWN INDICATION
     Route: 065
  6. DABIGATRAN [Concomitant]
     Active Substance: DABIGATRAN
     Indication: PRODUCT USED FOR UNKNOWN INDICATION
     Route: 065
  7. LORAZEPAM. [Concomitant]
     Active Substance: LORAZEPAM
     Dosage: 2MG
     Route: 042
  8. DILTIAZEM. [Interacting]
     Active Substance: DILTIAZEM
     Indication: HYPERTENSION
     Dosage: CONTROLLED RELEASE
     Route: 065
  9. LORAZEPAM. [Concomitant]
     Active Substance: LORAZEPAM
     Indication: ALCOHOL WITHDRAWAL SYNDROME
     Route: 065
  10. DOFETILIDE. [Interacting]
     Active Substance: DOFETILIDE
     Indication: ATRIAL FIBRILLATION
  11. FAMOTIDINE. [Interacting]
     Active Substance: FAMOTIDINE
     Indication: NAUSEA
     Dosage: 20 MILLIGRAM DAILY;
     Route: 042
  12. ROSUVASTATIN. [Concomitant]
     Active Substance: ROSUVASTATIN
     Indication: HYPERCHOLESTEROLAEMIA
     Route: 065
  13. ONDANSETRON [Suspect]
     Active Substance: ONDANSETRON
     Indication: NAUSEA
     Dosage: 8 MILLIGRAM DAILY;
     Route: 042
  14. SENNA [Concomitant]
     Active Substance: SENNA LEAF\SENNOSIDES\SENNOSIDES A AND B
     Indication: PRODUCT USED FOR UNKNOWN INDICATION
     Route: 065

REACTIONS (6)
  - Electrocardiogram QT prolonged [Recovered/Resolved]
  - Drug interaction [Recovering/Resolving]
  - Cardiac arrest [Recovered/Resolved]
  - Product prescribing error [Unknown]
  - Ventricular fibrillation [Recovered/Resolved]
  - Overdose [Unknown]
